FAERS Safety Report 24545314 (Version 4)
Quarter: 2024Q4

REPORT INFORMATION
  Report Type: Spontaneous
  Country: ES (occurrence: ES)
  Receive Date: 20241024
  Receipt Date: 20241128
  Transmission Date: 20250114
  Serious: Yes (Hospitalization)
  Sender: PFIZER
  Company Number: ES-ROCHE-10000107820

PATIENT
  Age: 79 Year
  Sex: Female

DRUGS (9)
  1. RITUXIMAB [Suspect]
     Active Substance: RITUXIMAB
     Indication: Diffuse large B-cell lymphoma
     Dosage: 625.63 MG, EVERY 3 WEEKS
     Route: 042
     Dates: start: 20240925, end: 20240925
  2. GOLCADOMIDE [Suspect]
     Active Substance: GOLCADOMIDE
     Indication: Diffuse large B-cell lymphoma
     Dosage: UNK
     Route: 048
     Dates: start: 20240925, end: 20241001
  3. PREDNISOLONE [Suspect]
     Active Substance: PREDNISOLONE
     Indication: Diffuse large B-cell lymphoma
     Dosage: 6 MG, 1X/DAY
     Route: 042
     Dates: start: 20240925, end: 20240925
  4. CYTARABINE [Concomitant]
     Active Substance: CYTARABINE
     Dosage: 30 MG, SINGLE (ONCE)
     Dates: start: 20240924, end: 20240924
  5. HYDROCORTISONE [Concomitant]
     Active Substance: HYDROCORTISONE
     Dosage: 20 MG, SINGLE (ONCE)
     Dates: start: 20240924, end: 20240924
  6. METHOTREXATE [Concomitant]
     Active Substance: METHOTREXATE
     Dosage: 12 MG, SINGLE (ONCE)
     Dates: start: 20240924, end: 20240924
  7. DEXCHLORPHENIRAMINE [Concomitant]
     Active Substance: DEXCHLORPHENIRAMINE
     Dosage: 5 MG, 1X/DAY
     Route: 042
     Dates: start: 20240925, end: 20241008
  8. METHYLPREDNISOLONE [Concomitant]
     Active Substance: METHYLPREDNISOLONE
     Dosage: 80 MG, 1X/DAY
     Route: 042
     Dates: start: 20240925, end: 20241010
  9. ACETAMINOPHEN [Concomitant]
     Active Substance: ACETAMINOPHEN
     Dosage: 1000 MG, 1X/DAY
     Route: 042
     Dates: start: 20200925, end: 20240930

REACTIONS (2)
  - Respiratory distress [Recovered/Resolved]
  - Infusion related reaction [Recovered/Resolved]

NARRATIVE: CASE EVENT DATE: 20240925
